FAERS Safety Report 25047635 (Version 3)
Quarter: 2025Q2

REPORT INFORMATION
  Report Type: Spontaneous
  Country: US (occurrence: US)
  Receive Date: 20250306
  Receipt Date: 20250401
  Transmission Date: 20250716
  Serious: Yes (Life-Threatening, Hospitalization, Other)
  Sender: DAIICHI
  Company Number: US-DSJP-DS-2025-128015-US

PATIENT
  Age: 62 Year
  Sex: Female
  Weight: 67.12 kg

DRUGS (1)
  1. ENHERTU [Suspect]
     Active Substance: FAM-TRASTUZUMAB DERUXTECAN-NXKI
     Indication: Endometrial cancer
     Route: 065
     Dates: start: 20250220, end: 20250220

REACTIONS (15)
  - Septic shock [Unknown]
  - Upper gastrointestinal haemorrhage [Recovering/Resolving]
  - Acute kidney injury [Unknown]
  - Hyperkalaemia [Unknown]
  - Tumour lysis syndrome [Recovered/Resolved]
  - Blood loss anaemia [Unknown]
  - Hydronephrosis [Unknown]
  - Pancytopenia [Recovered/Resolved]
  - Hypokalaemia [Unknown]
  - Deep vein thrombosis [Unknown]
  - Pneumonia [Unknown]
  - Hyponatraemia [Recovered/Resolved]
  - Malnutrition [Recovering/Resolving]
  - Enterococcal infection [Unknown]
  - Thrombocytopenia [Recovered/Resolved]

NARRATIVE: CASE EVENT DATE: 20250223
